FAERS Safety Report 16542756 (Version 2)
Quarter: 2019Q3

REPORT INFORMATION
  Report Type: Spontaneous
  Country: NL (occurrence: NL)
  Receive Date: 20190709
  Receipt Date: 20190723
  Transmission Date: 20191004
  Serious: Yes (Other)
  Sender: FDA-Public Use
  Company Number: NL-AUROBINDO-AUR-APL-2019-038237

PATIENT

DRUGS (2)
  1. PAROXETINE. [Suspect]
     Active Substance: PAROXETINE
     Indication: ANXIETY
     Dosage: 20 MILLIGRAM, ONCE A DAY(A 28 DAY TAPERING OFF PROGRAMME)
     Route: 065
  2. PAROXETINE. [Suspect]
     Active Substance: PAROXETINE
     Dosage: UNK,DOSE REDUTION FROM 20 MG/DAYTO0 MG/DAY
     Route: 065

REACTIONS (6)
  - Drug dependence [Unknown]
  - Product dispensing error [Unknown]
  - Anxiety [Unknown]
  - Incorrect dose administered [Unknown]
  - Psychotic disorder [Unknown]
  - Product packaging confusion [Unknown]
